FAERS Safety Report 22912487 (Version 3)
Quarter: 2023Q4

REPORT INFORMATION
  Report Type: Spontaneous
  Country: JP (occurrence: JP)
  Receive Date: 20230906
  Receipt Date: 20231031
  Transmission Date: 20240110
  Serious: Yes (Hospitalization, Other)
  Sender: FDA-Public Use
  Company Number: JP-BAUSCH-BL-2023-013236

PATIENT
  Age: 49 Year
  Sex: Male
  Weight: 58 kg

DRUGS (2)
  1. BUDESONIDE [Suspect]
     Active Substance: BUDESONIDE
     Indication: Colitis ulcerative
     Route: 054
  2. MESALAMINE [Concomitant]
     Active Substance: MESALAMINE
     Indication: Product used for unknown indication

REACTIONS (11)
  - Colitis ulcerative [Recovered/Resolved]
  - Epstein-Barr virus associated lymphoma [Recovered/Resolved]
  - B-cell lymphoma stage II [Recovered/Resolved]
  - Sigmoidoscopy abnormal [Unknown]
  - Enterocolitis [Unknown]
  - Tissue infiltration [Unknown]
  - Cryptitis [Unknown]
  - Abscess intestinal [Unknown]
  - Lymphocyte morphology abnormal [Unknown]
  - Gastrointestinal wall thickening [Unknown]
  - Infection susceptibility increased [Recovered/Resolved]
